FAERS Safety Report 7698866-5 (Version None)
Quarter: 2011Q3

REPORT INFORMATION
  Report Type: 
  Country: None (occurrence: None)
  Receive Date: 20110819
  Receipt Date: 20110814
  Transmission Date: 20111222
  Serious: Yes (Death, Other)
  Sender: FDA-Public Use
  Company Number: PHHY2011US73864

PATIENT
  Age: 43 Year
  Sex: Male

DRUGS (1)
  1. IMATINIB MESYLATE [Suspect]
     Indication: CHRONIC MYELOMONOCYTIC LEUKAEMIA
     Dosage: 400 MG, DAILY
     Route: 065
     Dates: start: 20080901, end: 20090801

REACTIONS (6)
  - PYREXIA [None]
  - BLAST CELL PROLIFERATION [None]
  - LUNG INFILTRATION [None]
  - MULTI-ORGAN FAILURE [None]
  - H1N1 INFLUENZA [None]
  - ACUTE MYELOID LEUKAEMIA [None]
